FAERS Safety Report 13806807 (Version 3)
Quarter: 2018Q1

REPORT INFORMATION
  Report Type: Report from Study
  Country: US (occurrence: US)
  Receive Date: 20170728
  Receipt Date: 20180125
  Transmission Date: 20180508
  Serious: No
  Sender: FDA-Public Use
  Company Number: US-AMGEN-USASL2017097354

PATIENT
  Age: 43 Year
  Sex: Female
  Weight: 103.4 kg

DRUGS (1)
  1. REPATHA [Suspect]
     Active Substance: EVOLOCUMAB
     Indication: LOW DENSITY LIPOPROTEIN ABNORMAL
     Dosage: 140 MG, Q2WK
     Route: 065

REACTIONS (4)
  - Joint injury [Unknown]
  - Drug dose omission [Unknown]
  - Limb injury [Unknown]
  - Muscular weakness [Unknown]

NARRATIVE: CASE EVENT DATE: 2017
